FAERS Safety Report 6048332-8 (Version None)
Quarter: 2009Q1

REPORT INFORMATION
  Report Type: 
  Country: None (occurrence: None)
  Receive Date: 20090123
  Receipt Date: 20081208
  Transmission Date: 20090719
  Serious: Yes (Hospitalization)
  Sender: FDA-Public Use
  Company Number: CZ-PFIZER INC-2008099909

PATIENT

DRUGS (6)
  1. BLINDED *LAMOTRIGINE [Suspect]
     Indication: EPILEPSY
     Route: 048
     Dates: start: 20081008
  2. BLINDED PREGABALIN [Suspect]
     Indication: EPILEPSY
     Route: 048
     Dates: start: 20081008
  3. BETAXOLOL [Concomitant]
     Dosage: UNK
     Route: 048
     Dates: start: 20061028
  4. RAMIPRIL [Concomitant]
     Dosage: UNK
     Route: 048
     Dates: start: 20061028
  5. SIMVASTATIN [Concomitant]
     Dosage: UNK
     Route: 048
     Dates: start: 20061028
  6. AGGRENOX [Concomitant]
     Dosage: UNK
     Route: 048
     Dates: start: 20080425

REACTIONS (1)
  - DYSPEPSIA [None]
